FAERS Safety Report 7234496-7 (Version None)
Quarter: 2011Q1

REPORT INFORMATION
  Report Type: 
  Country: None (occurrence: None)
  Receive Date: 20110119
  Receipt Date: 20110114
  Transmission Date: 20110831
  Serious: Yes (Other)
  Sender: FDA-Public Use
  Company Number: FR-MERCK-1011FRA00073

PATIENT
  Age: 57 Year
  Sex: Female

DRUGS (5)
  1. HYZAAR [Suspect]
     Indication: HYPERTENSION
     Route: 048
  2. PRAVASTATIN SODIUM [Concomitant]
     Indication: DYSLIPIDAEMIA
     Route: 048
  3. ESTROGENS (UNSPECIFIED) [Concomitant]
     Route: 048
  4. CHONDROITIN [Concomitant]
     Route: 048
  5. PREDNISOLONE SODIUM METAZOATE [Suspect]
     Route: 048
     Dates: start: 20100701, end: 20100701

REACTIONS (1)
  - OSTEONECROSIS [None]
